FAERS Safety Report 4511757-3 (Version None)
Quarter: 2004Q4

REPORT INFORMATION
  Report Type: 
  Country: None (occurrence: None)
  Receive Date: 20041129
  Receipt Date: 20041117
  Transmission Date: 20050328
  Serious: Yes (Hospitalization)
  Sender: FDA-Public Use
  Company Number: MY-ABBOTT-04P-101-0281076-00

PATIENT
  Sex: Male
  Weight: 57 kg

DRUGS (7)
  1. GENGRAF [Suspect]
     Indication: DRUG USE FOR UNKNOWN INDICATION
  2. AMLODIPINE BESYLATE [Concomitant]
     Indication: HYPERTENSION
     Route: 048
     Dates: start: 20040715
  3. DILTIAZEM [Concomitant]
     Indication: HYPERTENSION
     Route: 048
     Dates: start: 20040715
  4. T VITAMIN B COMPLEX [Concomitant]
     Indication: BONE MARROW DEPRESSION
     Route: 048
     Dates: start: 20040715
  5. T FOLIC ACID [Concomitant]
     Indication: BONE MARROW DEPRESSION
     Route: 048
     Dates: start: 20040715
  6. T FERROUS SULFATE [Concomitant]
     Indication: BONE MARROW DEPRESSION
     Route: 048
     Dates: start: 20040715
  7. INSULIN INITARD NORDISK [Concomitant]
     Indication: DIABETES MELLITUS
     Route: 058
     Dates: start: 20040730, end: 20040826

REACTIONS (1)
  - BRONCHOPNEUMONIA [None]
